FAERS Safety Report 23332991 (Version 2)
Quarter: 2024Q1

REPORT INFORMATION
  Report Type: Spontaneous
  Country: ES (occurrence: ES)
  Receive Date: 20231222
  Receipt Date: 20240130
  Transmission Date: 20240410
  Serious: Yes (Life-Threatening)
  Sender: FDA-Public Use
  Company Number: ES-AEMPS-1418185

PATIENT
  Age: 46 Year
  Sex: Male

DRUGS (1)
  1. NOREPINEPHRINE [Suspect]
     Active Substance: NOREPINEPHRINE
     Indication: Product prescribing error
     Dosage: UNK
     Route: 065
     Dates: start: 20230823, end: 20230823

REACTIONS (4)
  - Haemorrhage [Unknown]
  - Cardio-respiratory arrest [Recovered/Resolved]
  - Hypertension [Unknown]
  - Medication error [Unknown]

NARRATIVE: CASE EVENT DATE: 20230823
